FAERS Safety Report 14204437 (Version 1)
Quarter: 2017Q4

REPORT INFORMATION
  Report Type: Spontaneous
  Country: US (occurrence: US)
  Receive Date: 20171120
  Receipt Date: 20171120
  Transmission Date: 20180321
  Serious: No
  Sender: FDA-Public Use
  Company Number: US-SUNOVION-2017SUN004880

PATIENT
  Sex: Female
  Weight: 79.37 kg

DRUGS (3)
  1. LUNESTA [Suspect]
     Active Substance: ESZOPICLONE
     Dosage: 3 MG, HS
     Route: 048
  2. TRAZODONE HYDROCHLORIDE. [Concomitant]
     Active Substance: TRAZODONE HYDROCHLORIDE
     Indication: SLEEP DISORDER
     Dosage: UNK UNK, HS
     Route: 048
  3. LUNESTA [Suspect]
     Active Substance: ESZOPICLONE
     Indication: INSOMNIA
     Dosage: 1 MG, HS
     Route: 048

REACTIONS (1)
  - Alopecia [Unknown]
